FAERS Safety Report 24168213 (Version 1)
Quarter: 2024Q3

REPORT INFORMATION
  Report Type: Report from Study
  Country: IL (occurrence: IL)
  Receive Date: 20240802
  Receipt Date: 20240802
  Transmission Date: 20241017
  Serious: Yes (Hospitalization)
  Sender: ROCHE
  Company Number: IL-ROCHE-10000045812

PATIENT
  Sex: Female

DRUGS (1)
  1. OCREVUS [Suspect]
     Active Substance: OCRELIZUMAB
     Indication: Primary progressive multiple sclerosis
     Dosage: MORE DOSAGE INFORMATION IS 600MG Q6M
     Route: 042
     Dates: start: 20181126

REACTIONS (2)
  - Pneumonia [Not Recovered/Not Resolved]
  - COVID-19 [Unknown]
